FAERS Safety Report 9758371 (Version 1)
Quarter: 2013Q4

REPORT INFORMATION
  Report Type: Spontaneous
  Country: US (occurrence: None)
  Receive Date: 20131213
  Receipt Date: 20131213
  Transmission Date: 20140711
  Serious: Yes (Other)
  Sender: FDA-Public Use
  Company Number: None

PATIENT
  Age: 70 Year
  Sex: Male
  Weight: 59 kg

DRUGS (3)
  1. BENDAMUSTINE HYDROCHLORIDE [Suspect]
     Dosage: PT. RECIEVED DAY 1 LOT 100MG TA30213 25MG TB30213
  2. PS-341 [Suspect]
  3. RITUXIMAB [Suspect]

REACTIONS (4)
  - Crepitations [None]
  - Dyspnoea [None]
  - Pulmonary oedema [None]
  - Fall [None]
